FAERS Safety Report 13740441 (Version 1)
Quarter: 2017Q3

REPORT INFORMATION
  Report Type: Spontaneous
  Country: US (occurrence: US)
  Receive Date: 20170710
  Receipt Date: 20170710
  Transmission Date: 20171127
  Serious: No
  Sender: FDA-Public Use
  Company Number: None

PATIENT
  Age: 31 Year
  Sex: Female
  Weight: 63 kg

DRUGS (1)
  1. SODIUM BICARBONATE 1 MEQ/ML [Suspect]
     Active Substance: SODIUM BICARBONATE
     Dosage: ?          OTHER DOSE:MEQ;OTHER FREQUENCY:AS NEEDED FOR CODE;?
     Route: 042

REACTIONS (1)
  - Accidental exposure to product [None]

NARRATIVE: CASE EVENT DATE: 20170702
